FAERS Safety Report 14050842 (Version 1)
Quarter: 2017Q4

REPORT INFORMATION
  Report Type: Spontaneous
  Country: JP (occurrence: JP)
  Receive Date: 20171005
  Receipt Date: 20171005
  Transmission Date: 20180321
  Serious: Yes (Hospitalization)
  Sender: FDA-Public Use
  Company Number: JP-NOVOPROD-565343

PATIENT

DRUGS (3)
  1. NOVORAPID [Suspect]
     Active Substance: INSULIN ASPART
     Indication: DIABETES MELLITUS
     Dosage: 4 IU, TID, AFTER MEALS
     Route: 058
  2. LEVEMIR [Suspect]
     Active Substance: INSULIN DETEMIR
     Dosage: 11 IU, QD, BEFORE EVENING MEAL
     Route: 058
  3. LEVEMIR [Suspect]
     Active Substance: INSULIN DETEMIR
     Indication: DIABETES MELLITUS
     Dosage: 11 IU, QD, BEFORE BEDTIME
     Route: 058

REACTIONS (6)
  - Flushing [Unknown]
  - Blood pressure increased [Unknown]
  - Malaise [Unknown]
  - Blood potassium increased [Unknown]
  - Abdominal discomfort [Unknown]
  - Palpitations [Unknown]

NARRATIVE: CASE EVENT DATE: 20170921
